FAERS Safety Report 13090897 (Version 1)
Quarter: 2017Q1

REPORT INFORMATION
  Report Type: Spontaneous
  Country: US (occurrence: US)
  Receive Date: 20170106
  Receipt Date: 20170106
  Transmission Date: 20170428
  Serious: No
  Sender: FDA-Public Use
  Company Number: US-DRREDDYS-USA/USA/16/0080886

PATIENT
  Age: 28 Year
  Sex: Female
  Weight: 82.55 kg

DRUGS (2)
  1. HABITROL [Suspect]
     Active Substance: NICOTINE
     Indication: SMOKING CESSATION THERAPY
     Route: 062
  2. HABITROL [Suspect]
     Active Substance: NICOTINE
     Route: 061
     Dates: start: 20160618

REACTIONS (4)
  - Diarrhoea [Not Recovered/Not Resolved]
  - Treatment noncompliance [Unknown]
  - Product adhesion issue [Unknown]
  - Abdominal pain upper [Unknown]

NARRATIVE: CASE EVENT DATE: 20160620
